FAERS Safety Report 10064333 (Version 1)
Quarter: 2014Q1

REPORT INFORMATION
  Report Type: Spontaneous
  Country: US (occurrence: None)
  Receive Date: 20140114
  Receipt Date: 20140114
  Transmission Date: 20141002
  Serious: Yes (Other)
  Sender: FDA-Public Use
  Company Number: US-JNJFOC-20131005604

PATIENT
  Age: 15 Year
  Sex: Female
  Weight: 72.58 kg

DRUGS (2)
  1. ZYRTEC IR [Suspect]
     Indication: URTICARIA
     Route: 048
     Dates: end: 20131007
  2. ZYRTEC IR [Suspect]
     Indication: FOOD ALLERGY
     Route: 048
     Dates: end: 20131007

REACTIONS (5)
  - Convulsion [None]
  - Paraesthesia [None]
  - Pruritus [None]
  - Dizziness [None]
  - Eye colour change [None]
